FAERS Safety Report 7494815-3 (Version None)
Quarter: 2011Q2

REPORT INFORMATION
  Report Type: 
  Country: None (occurrence: None)
  Receive Date: 20110520
  Receipt Date: 20110429
  Transmission Date: 20111010
  Serious: Yes (Hospitalization)
  Sender: FDA-Public Use
  Company Number: A0928053A

PATIENT
  Age: 80 Year
  Sex: Male

DRUGS (1)
  1. LOVAZA [Suspect]
     Route: 048
     Dates: start: 20100101

REACTIONS (1)
  - MYOCARDIAL INFARCTION [None]
